FAERS Safety Report 21151195 (Version 1)
Quarter: 2022Q3

REPORT INFORMATION
  Report Type: Spontaneous
  Country: FR (occurrence: FR)
  Receive Date: 20220730
  Receipt Date: 20220730
  Transmission Date: 20221027
  Serious: Yes (Hospitalization)
  Sender: FDA-Public Use
  Company Number: None

PATIENT
  Age: 40 Year
  Sex: Female

DRUGS (11)
  1. DULOXETINE HYDROCHLORIDE [Suspect]
     Active Substance: DULOXETINE HYDROCHLORIDE
     Indication: Product used for unknown indication
     Dosage: UNIT DOSE: 120 MG, FREQUENCY TIME-1 DAY, THERAPY START DATE: ASKU
  2. GABAPENTIN [Suspect]
     Active Substance: GABAPENTIN
     Indication: Product used for unknown indication
     Dosage: UNIT DOSE: 900 MG, FREQUENCY TIME-1 DAY,
     Dates: start: 20220625
  3. RISPERIDONE [Suspect]
     Active Substance: RISPERIDONE
     Indication: Product used for unknown indication
     Dosage: UNIT DOSE: 0.5 MG, FREQUENCY TIME-1 DAY
  4. LORMETAZEPAM [Suspect]
     Active Substance: LORMETAZEPAM
     Indication: Product used for unknown indication
     Dosage: UNIT DOSE: 2 MCG, FREQUENCY TIME-1 DAY,
  5. LEVOTHYROXINE SODIUM [Suspect]
     Active Substance: LEVOTHYROXINE SODIUM
     Indication: Hypothyroidism
     Dosage: UNIT DOSE: 75 MCG, FREQUENCY TIME-1 DAY, THERAPY START DATE: ASKU
  6. CALCIUM PHOSPHATE, DIBASIC, ANHYDROUS\MAGNESIUM GLYCEROPHOSPHATE\PHOSP [Concomitant]
     Active Substance: CALCIUM PHOSPHATE, DIBASIC, ANHYDROUS\MAGNESIUM GLYCEROPHOSPHATE\PHOSPHORIC ACID\SODIUM PHOSPHATE, D
     Indication: Product used for unknown indication
     Dosage: 90 GTT DAILY; 30 - 30 - 30, UNIT DOSE: 90 GTT, FREQUENCY TIME-1 DAY
  7. NEFOPAM HYDROCHLORIDE [Concomitant]
     Active Substance: NEFOPAM HYDROCHLORIDE
     Indication: Headache
     Dates: start: 20220630
  8. LOXAPINE [Concomitant]
     Active Substance: LOXAPINE
     Indication: Anxiety
     Dosage: 20 GTT DAILY; 5 - 5 - 10, UNIT DOSE: 20 GTT, FREQUENCY TIME-1 DAY, DURATION-5 DAYS
     Dates: start: 20220701, end: 20220706
  9. ENOXAPARIN SODIUM [Concomitant]
     Active Substance: ENOXAPARIN SODIUM
     Indication: Product used for unknown indication
     Dosage: 4000 IU, ((MAMMALS/PIGS/INTESTINAL MUCOSA)), FREQUENCY TIME-1 DAY
     Dates: start: 20220630
  10. THIAMINE HYDROCHLORIDE [Concomitant]
     Active Substance: THIAMINE HYDROCHLORIDE
     Indication: Product used for unknown indication
     Dosage: FORM STRENGTH: 250 MG, UNIT DOSE: 250 MG, FREQUENCY TIME-1 DAY,
  11. AZINC COMPLEX [Concomitant]
     Indication: Product used for unknown indication
     Dosage: UNIT DOSE: 2 DF, FREQUENCY TIME-1 DAY,

REACTIONS (1)
  - Hepatic cytolysis [Not Recovered/Not Resolved]

NARRATIVE: CASE EVENT DATE: 20220629
